FAERS Safety Report 19818702 (Version 1)
Quarter: 2021Q3

REPORT INFORMATION
  Report Type: Spontaneous
  Country: CA (occurrence: CA)
  Receive Date: 20210912
  Receipt Date: 20210912
  Transmission Date: 20211014
  Serious: Yes (Life-Threatening, Hospitalization, Disabling)
  Sender: FDA-Public Use
  Company Number: CA-TEVA-2021-CA-1950920

PATIENT
  Age: 68 Year
  Sex: Female
  Weight: 58 kg

DRUGS (14)
  1. CALCIUM + VITAMIN D [Concomitant]
     Active Substance: CALCIUM\VITAMIN D
  2. DEXAMETHASONE. [Concomitant]
     Active Substance: DEXAMETHASONE
  3. VITAMIN B12 [Concomitant]
     Active Substance: CYANOCOBALAMIN
  4. APO?PROCHLORAZINE [Concomitant]
     Active Substance: PROCHLORPERAZINE MALEATE
  5. ESOMEPRAZOLE. [Concomitant]
     Active Substance: ESOMEPRAZOLE MAGNESIUM
  6. PERINDOPRIL [Concomitant]
     Active Substance: PERINDOPRIL
  7. PREDNISONE. [Concomitant]
     Active Substance: PREDNISONE
  8. CARBOPLATIN. [Suspect]
     Active Substance: CARBOPLATIN
     Indication: LUNG ADENOCARCINOMA
     Route: 042
  9. FOLIC ACID. [Concomitant]
     Active Substance: FOLIC ACID
  10. PEMETREXED. [Suspect]
     Active Substance: PEMETREXED
     Indication: LUNG ADENOCARCINOMA
     Route: 042
  11. XARELTO [Concomitant]
     Active Substance: RIVAROXABAN
  12. ATIVAN [Concomitant]
     Active Substance: LORAZEPAM
  13. ATORVASTATIN [Concomitant]
     Active Substance: ATORVASTATIN
  14. ZOPICLONE [Concomitant]
     Active Substance: ZOPICLONE

REACTIONS (5)
  - Confusional state [Not Recovered/Not Resolved]
  - Endocarditis [Not Recovered/Not Resolved]
  - Embolic stroke [Not Recovered/Not Resolved]
  - Aphasia [Not Recovered/Not Resolved]
  - Thrombocytopenia [Not Recovered/Not Resolved]
